FAERS Safety Report 17724121 (Version 5)
Quarter: 2020Q3

REPORT INFORMATION
  Report Type: Report from Study
  Country: CA (occurrence: CA)
  Receive Date: 20200429
  Receipt Date: 20200811
  Transmission Date: 20201102
  Serious: Yes (Hospitalization)
  Sender: FDA-Public Use
  Company Number: CA-JNJFOC-20200414432

PATIENT
  Age: 16 Year
  Sex: Female
  Weight: 71.5 kg

DRUGS (2)
  1. STELARA [Suspect]
     Active Substance: USTEKINUMAB
     Indication: CROHN^S DISEASE
     Dosage: 11TH INJECTION RECEIVED ON 21?MAY?2020
     Route: 058
     Dates: start: 20181128
  2. STELARA [Suspect]
     Active Substance: USTEKINUMAB
     Indication: PSORIASIS
     Dosage: REINDUCTION
     Route: 042

REACTIONS (8)
  - Eating disorder symptom [Unknown]
  - Urinary tract infection [Recovered/Resolved]
  - Product use issue [Unknown]
  - Crohn^s disease [Not Recovered/Not Resolved]
  - Genital herpes [Recovered/Resolved]
  - Psoriasis [Unknown]
  - Off label use [Unknown]
  - Chills [Recovered/Resolved]

NARRATIVE: CASE EVENT DATE: 20181128
